FAERS Safety Report 16826153 (Version 1)
Quarter: 2019Q3

REPORT INFORMATION
  Report Type: Spontaneous
  Country: US (occurrence: US)
  Receive Date: 20190919
  Receipt Date: 20190919
  Transmission Date: 20191005
  Serious: Yes (Hospitalization, Other)
  Sender: FDA-Public Use
  Company Number: US-INGENUS PHARMACEUTICALS, LLC-2019INF000287

PATIENT
  Age: 61 Year
  Sex: Female

DRUGS (2)
  1. GEMCITABINE HYDROCHLORIDE. [Suspect]
     Active Substance: GEMCITABINE HYDROCHLORIDE
     Indication: CUTANEOUS T-CELL LYMPHOMA
     Dosage: 1000 MILLIGRAM/SQ. METER, ON DAYS 1, 8, AND 15 OF A 28-DAY CYCLE
     Route: 065
  2. GEMCITABINE HYDROCHLORIDE. [Suspect]
     Active Substance: GEMCITABINE HYDROCHLORIDE
     Dosage: 750 MILLIGRAM/SQ. METER, EVERY OTHER WEEK STARTING FROM CYCLE 3 TILL 13 CYCLES
     Route: 065

REACTIONS (5)
  - Staphylococcal infection [Recovered/Resolved]
  - Sepsis [Recovered/Resolved]
  - Spinal cord oedema [Recovered/Resolved]
  - Intervertebral discitis [Recovered/Resolved]
  - Neutropenia [Recovered/Resolved]
